FAERS Safety Report 22659183 (Version 4)
Quarter: 2024Q2

REPORT INFORMATION
  Report Type: Other
  Country: NL (occurrence: NL)
  Receive Date: 20230630
  Receipt Date: 20240522
  Transmission Date: 20240715
  Serious: Yes (Other)
  Sender: FDA-Public Use
  Company Number: NL-ROCHE-2876775

PATIENT
  Age: 10 Year
  Sex: Female

DRUGS (5)
  1. RITUXIMAB [Suspect]
     Active Substance: RITUXIMAB
     Indication: Systemic scleroderma
     Dosage: ONE CYCLE CONSISTED OF 2 INFUSIONS WITH 7-14 DAYS INTERVAL
     Route: 042
  2. MYCOPHENOLIC ACID [Concomitant]
     Active Substance: MYCOPHENOLIC ACID
  3. PREDNISOLONE [Concomitant]
     Active Substance: PREDNISOLONE
     Dosage: 0.3-0.5 MG/KG
     Route: 048
  4. ACETAMINOPHEN [Concomitant]
     Active Substance: ACETAMINOPHEN
     Indication: Product used for unknown indication
  5. CETIRIZINE [Concomitant]
     Active Substance: CETIRIZINE HYDROCHLORIDE
     Indication: Product used for unknown indication
     Dosage: 5-10 MG
     Route: 048

REACTIONS (4)
  - Drug specific antibody present [Unknown]
  - Infusion related reaction [Unknown]
  - Off label use [Unknown]
  - Off label use [Unknown]
